FAERS Safety Report 24547605 (Version 2)
Quarter: 2024Q4

REPORT INFORMATION
  Report Type: Spontaneous
  Country: FR (occurrence: FR)
  Receive Date: 20241025
  Receipt Date: 20241230
  Transmission Date: 20250115
  Serious: Yes (Other)
  Sender: TWI PHARMACEUTICALS
  Company Number: FR-TWI PHARMACEUTICAL, INC-20241000186

PATIENT
  Sex: Male

DRUGS (1)
  1. TOPIRAMATE [Suspect]
     Active Substance: TOPIRAMATE
     Indication: Product used for unknown indication
     Dosage: 700 MG
     Route: 065

REACTIONS (5)
  - Toxic encephalopathy [Unknown]
  - Suicide attempt [Unknown]
  - Electroencephalogram abnormal [Not Recovered/Not Resolved]
  - Intentional overdose [Unknown]
  - Blood bicarbonate decreased [Unknown]
